FAERS Safety Report 5050718-5 (Version None)
Quarter: 2006Q3

REPORT INFORMATION
  Report Type: 
  Country: None (occurrence: None)
  Receive Date: 20060713
  Receipt Date: 20060703
  Transmission Date: 20061208
  Serious: Yes (Life-Threatening)
  Sender: FDA-Public Use
  Company Number: TH-BRISTOL-MYERS SQUIBB COMPANY-13432372

PATIENT
  Sex: Female

DRUGS (5)
  1. REYATAZ [Suspect]
     Indication: HIV INFECTION
     Route: 048
     Dates: start: 20050303, end: 20050313
  2. NORVIR [Concomitant]
  3. NEVIRAPINE [Concomitant]
  4. ABACAVIR [Concomitant]
  5. LAMIVUDINE [Concomitant]

REACTIONS (4)
  - BLOOD BILIRUBIN UNCONJUGATED INCREASED [None]
  - OCULAR ICTERUS [None]
  - RED BLOOD CELL SCHISTOCYTES PRESENT [None]
  - YELLOW SKIN [None]
